FAERS Safety Report 5308139-3 (Version None)
Quarter: 2007Q2

REPORT INFORMATION
  Report Type: 
  Country: None (occurrence: None)
  Receive Date: 20070426
  Receipt Date: 20070418
  Transmission Date: 20071010
  Serious: Yes (Hospitalization)
  Sender: FDA-Public Use
  Company Number: PHNR2006AU01075

PATIENT
  Age: 46 Year
  Sex: Female

DRUGS (5)
  1. ZOMETA [Suspect]
     Dosage: MONTHLY
     Route: 042
     Dates: start: 20050701, end: 20060803
  2. VINORELBINE [Concomitant]
     Dates: start: 20060801
  3. PROCHLORPERAZINE [Concomitant]
  4. LEVOTHYROXINE SODIUM [Concomitant]
  5. ONDANSETRON HCL [Concomitant]

REACTIONS (4)
  - ELECTROLYTE IMBALANCE [None]
  - HYPOCALCAEMIA [None]
  - PAIN [None]
  - PARAESTHESIA [None]
